FAERS Safety Report 17802312 (Version 1)
Quarter: 2020Q2

REPORT INFORMATION
  Report Type: Spontaneous
  Country: US (occurrence: US)
  Receive Date: 20200519
  Receipt Date: 20200519
  Transmission Date: 20200714
  Serious: No
  Sender: FDA-Public Use
  Company Number: US-NOVEN PHARMACEUTICALS, INC.-US2019000290

PATIENT

DRUGS (4)
  1. DAYTRANA [Suspect]
     Active Substance: METHYLPHENIDATE
     Indication: ATTENTION DEFICIT HYPERACTIVITY DISORDER
     Dosage: 10 MG, UNK
     Route: 062
     Dates: start: 2019, end: 2019
  2. GUANIDINE [Concomitant]
     Active Substance: GUANIDINE
  3. ZOLOFT [Concomitant]
     Active Substance: SERTRALINE HYDROCHLORIDE
  4. DAYTRANA [Suspect]
     Active Substance: METHYLPHENIDATE
     Dosage: 15 MG, UNKNOWN
     Route: 062
     Dates: start: 2019

REACTIONS (7)
  - Product adhesion issue [Unknown]
  - Product quality issue [Unknown]
  - Abnormal behaviour [Unknown]
  - Product dose omission [Recovered/Resolved]
  - Wrong technique in product usage process [Unknown]
  - Application site erythema [Unknown]
  - Irritability [Unknown]

NARRATIVE: CASE EVENT DATE: 2019
